FAERS Safety Report 10080009 (Version 1)
Quarter: 2014Q2

REPORT INFORMATION
  Report Type: Spontaneous
  Country: US (occurrence: US)
  Receive Date: 20140415
  Receipt Date: 20140415
  Transmission Date: 20141212
  Serious: No
  Sender: FDA-Public Use
  Company Number: US-ASTRAZENECA-2014SE23200

PATIENT
  Age: 82 Year
  Sex: Female
  Weight: 78.5 kg

DRUGS (9)
  1. SYMBICORT [Suspect]
     Indication: CHRONIC OBSTRUCTIVE PULMONARY DISEASE
     Dosage: 2 PUFFS, BID
     Route: 055
     Dates: start: 20140331
  2. OMEPRAZOLE [Suspect]
     Indication: GASTROOESOPHAGEAL REFLUX DISEASE
     Dosage: PRN
     Route: 048
  3. LOSARTAN HYDROCHLORTIAZIDE [Concomitant]
     Indication: HYPERTENSION
     Dosage: 100MG 12.5MG DAILY
     Route: 048
  4. SIMVASTATIN [Concomitant]
     Indication: BLOOD CHOLESTEROL ABNORMAL
     Route: 048
  5. ALBUTEROL INHALER [Concomitant]
     Indication: CHRONIC OBSTRUCTIVE PULMONARY DISEASE
     Dosage: PRN
     Route: 055
  6. BABY ASPIRIN [Concomitant]
     Dosage: 1 TAB DAILY
     Route: 048
  7. EYE VITAMINS [Concomitant]
     Indication: EYE DISORDER
     Dosage: 1 TAB BID
     Route: 048
  8. COMBIGAN [Concomitant]
     Indication: GLAUCOMA
     Dosage: BID
     Route: 050
  9. LUMIGAN [Concomitant]
     Indication: GLAUCOMA
     Dosage: HS
     Route: 050

REACTIONS (5)
  - Fall [Recovering/Resolving]
  - Hearing impaired [Unknown]
  - Nervousness [Recovering/Resolving]
  - Dizziness [Recovering/Resolving]
  - Intentional product misuse [Unknown]
